FAERS Safety Report 7441554-0 (Version None)
Quarter: 2011Q2

REPORT INFORMATION
  Report Type: 
  Country: None (occurrence: None)
  Receive Date: 20110420
  Receipt Date: 20110414
  Transmission Date: 20111010
  Serious: Yes (Hospitalization)
  Sender: FDA-Public Use
  Company Number: 2010SP047114

PATIENT
  Age: 34 Year
  Sex: Female
  Weight: 127.0072 kg

DRUGS (2)
  1. NUVARING [Suspect]
     Indication: CONTRACEPTION
     Dates: start: 20081001, end: 20090201
  2. NUVARING [Suspect]
     Indication: MENORRHAGIA
     Dates: start: 20081001, end: 20090201

REACTIONS (23)
  - PAIN [None]
  - FEAR [None]
  - ANAEMIA [None]
  - UTERINE ENLARGEMENT [None]
  - VULVOVAGINAL MYCOTIC INFECTION [None]
  - CHEST DISCOMFORT [None]
  - CHEST PAIN [None]
  - DYSPNOEA [None]
  - HAEMOPTYSIS [None]
  - HERPES SIMPLEX SEROLOGY POSITIVE [None]
  - CARDIOMEGALY [None]
  - PULMONARY INFARCTION [None]
  - UTERINE LEIOMYOMA [None]
  - PULMONARY CONGESTION [None]
  - OVARIAN CYST [None]
  - VAGINAL HAEMORRHAGE [None]
  - BREAST MASS [None]
  - ASTHMA [None]
  - PULMONARY EMBOLISM [None]
  - DEEP VEIN THROMBOSIS [None]
  - BRONCHITIS [None]
  - PARAESTHESIA [None]
  - PLEURAL EFFUSION [None]
